FAERS Safety Report 23526429 (Version 2)
Quarter: 2024Q1

REPORT INFORMATION
  Report Type: Spontaneous
  Country: US (occurrence: US)
  Receive Date: 20240215
  Receipt Date: 20240325
  Transmission Date: 20240410
  Serious: Yes (Hospitalization, Other)
  Sender: FDA-Public Use
  Company Number: US-BRISTOL-MYERS SQUIBB COMPANY-2024-022277

PATIENT
  Age: 65 Year
  Sex: Female

DRUGS (1)
  1. POMALYST [Suspect]
     Active Substance: POMALIDOMIDE
     Indication: Hereditary haemorrhagic telangiectasia
     Dosage: TAKE 1 CAPSULE (4MG TOTAL) BY MOUTH EVERY DAY
     Route: 048
     Dates: start: 20231206

REACTIONS (4)
  - COVID-19 [Recovered/Resolved]
  - Haemorrhage [Recovered/Resolved]
  - Haematological infection [Recovered/Resolved]
  - Bone disorder [Recovering/Resolving]

NARRATIVE: CASE EVENT DATE: 20240201
